FAERS Safety Report 6096833-9 (Version None)
Quarter: 2009Q1

REPORT INFORMATION
  Report Type: 
  Country: None (occurrence: None)
  Receive Date: 20090226
  Receipt Date: 20090226
  Transmission Date: 20090719
  Serious: Yes (Life-Threatening)
  Sender: FDA-Public Use
  Company Number: None

PATIENT
  Age: 10 Month
  Sex: Male
  Weight: 7.7111 kg

DRUGS (1)
  1. BABY ORAJEL TEETHING PAIN MEDICINE DEL PHARMACEUTICAL INC [Suspect]
     Indication: TEETHING
     Dosage: 0.125 OZ AS NEEDED DENTAL
     Route: 004
     Dates: start: 20090116, end: 20090224

REACTIONS (3)
  - ABDOMINAL DISTENSION [None]
  - ABDOMINAL PAIN UPPER [None]
  - VOMITING [None]
